FAERS Safety Report 5926756-4 (Version None)
Quarter: 2008Q4

REPORT INFORMATION
  Report Type: 
  Country: None (occurrence: None)
  Receive Date: 20081017
  Receipt Date: 20081001
  Transmission Date: 20090506
  Serious: Yes (Other)
  Sender: FDA-Public Use
  Company Number: JP-2008-0769

PATIENT
  Age: 41 Year
  Sex: Female

DRUGS (2)
  1. NAVELBINE [Suspect]
     Indication: BREAST CANCER RECURRENT
  2. TRASTUZUMAB [Suspect]
     Indication: BREAST CANCER RECURRENT

REACTIONS (14)
  - ABDOMINAL DISTENSION [None]
  - ABDOMINAL PAIN [None]
  - ALANINE AMINOTRANSFERASE INCREASED [None]
  - ASCITES [None]
  - ASPARTATE AMINOTRANSFERASE INCREASED [None]
  - BLOOD BILIRUBIN INCREASED [None]
  - DRUG INEFFECTIVE [None]
  - DRUG INTERACTION [None]
  - INFUSION RELATED REACTION [None]
  - JAUNDICE [None]
  - METASTASES TO LIVER [None]
  - PAIN [None]
  - PYREXIA [None]
  - RASH [None]
